FAERS Safety Report 6154341-0 (Version None)
Quarter: 2009Q2

REPORT INFORMATION
  Report Type: 
  Country: None (occurrence: None)
  Receive Date: 20090410
  Receipt Date: 20090326
  Transmission Date: 20091009
  Serious: Yes (Other)
  Sender: FDA-Public Use
  Company Number: 8044505

PATIENT
  Age: 40 Year
  Sex: Male
  Weight: 116 kg

DRUGS (3)
  1. LEVETIRACETAM [Suspect]
     Indication: EPILEPSY
     Dates: start: 20080401, end: 20080801
  2. LEVETIRACETAM [Suspect]
     Indication: EPILEPSY
     Dosage: 500 MG 1/D PO
     Route: 048
     Dates: start: 20090320, end: 20090323
  3. VALPROATE SODIUM [Concomitant]

REACTIONS (10)
  - CEREBROVASCULAR ARTERIOVENOUS MALFORMATION [None]
  - DRUG HYPERSENSITIVITY [None]
  - DRY EYE [None]
  - KERATITIS [None]
  - ODYNOPHAGIA [None]
  - POST PROCEDURAL COMPLICATION [None]
  - PRURITUS [None]
  - RASH MACULO-PAPULAR [None]
  - SEBORRHOEIC DERMATITIS [None]
  - STATUS EPILEPTICUS [None]
